FAERS Safety Report 25608126 (Version 2)
Quarter: 2025Q3

REPORT INFORMATION
  Report Type: Spontaneous
  Country: US (occurrence: US)
  Receive Date: 20250725
  Receipt Date: 20250731
  Transmission Date: 20251021
  Serious: No
  Sender: MALLINCKRODT
  Company Number: US-MALLINCKRODT-MNK202504431

PATIENT
  Sex: Female

DRUGS (8)
  1. CORTICOTROPIN [Suspect]
     Active Substance: CORTICOTROPIN
     Indication: Scleritis
     Route: 058
     Dates: start: 20211205
  2. ROSUVASTATIN CALCIUM [Concomitant]
     Active Substance: ROSUVASTATIN CALCIUM
  3. LEFLUNOMIDE [Concomitant]
     Active Substance: LEFLUNOMIDE
  4. VITAMIN D3 [Concomitant]
     Active Substance: CHOLECALCIFEROL
  5. MIRTAZAPINE [Concomitant]
     Active Substance: MIRTAZAPINE
  6. GLIPIZIDE [Concomitant]
     Active Substance: GLIPIZIDE
  7. ESCITALOPRAM OXALATE [Concomitant]
     Active Substance: ESCITALOPRAM OXALATE
  8. ATENOLOL [Concomitant]
     Active Substance: ATENOLOL

REACTIONS (2)
  - Fall [Unknown]
  - Incorrect dose administered [Unknown]
